FAERS Safety Report 24985805 (Version 1)
Quarter: 2025Q1

REPORT INFORMATION
  Report Type: Spontaneous
  Country: US (occurrence: US)
  Receive Date: 20250219
  Receipt Date: 20250219
  Transmission Date: 20250408
  Serious: Yes (Life-Threatening, Hospitalization)
  Sender: HIKMA
  Company Number: US-MLMSERVICE-20250129-PI381091-00271-1

PATIENT
  Age: 38 Year
  Sex: Male

DRUGS (1)
  1. PREDNISONE [Suspect]
     Active Substance: PREDNISONE
     Indication: Hypopituitarism
     Dosage: 10 MG EVERY MORNING AND 5 MG EVERY EVENING
     Route: 065

REACTIONS (6)
  - Septic shock [Recovered/Resolved]
  - Lactic acidosis [Recovered/Resolved]
  - Hypotension [Recovered/Resolved]
  - CNS ventriculitis [Recovered/Resolved]
  - Meningitis streptococcal [Recovered/Resolved]
  - Alpha haemolytic streptococcal infection [Recovered/Resolved]
